FAERS Safety Report 9026386 (Version 1)
Quarter: 2012Q4

REPORT INFORMATION
  Report Type: Spontaneous
  Country: ES (occurrence: None)
  Receive Date: 20121211
  Receipt Date: 20121211
  Transmission Date: 20130627
  Serious: Yes (Other)
  Sender: FDA-Public Use
  Company Number: 2012-21487

PATIENT
  Age: 60 Year
  Sex: Male

DRUGS (1)
  1. GEMCITABINE [Suspect]
     Indication: PANCREATIC ADENOCARCINOMA METASTATIC

REACTIONS (6)
  - Thrombotic microangiopathy [None]
  - Livedo reticularis [None]
  - Panniculitis [None]
  - Anaemia [None]
  - Skin lesion [None]
  - Necrosis [None]
